FAERS Safety Report 13965099 (Version 1)
Quarter: 2017Q3

REPORT INFORMATION
  Report Type: Spontaneous
  Country: US (occurrence: US)
  Receive Date: 20170913
  Receipt Date: 20170913
  Transmission Date: 20171128
  Serious: No
  Sender: FDA-Public Use
  Company Number: US-PERRIGO-17US003237

PATIENT
  Age: 49 Year
  Sex: Female
  Weight: 61.68 kg

DRUGS (1)
  1. EVAMIST [Suspect]
     Active Substance: ESTRADIOL
     Indication: MENOPAUSE
     Dosage: 4.59 MG, QD
     Route: 061
     Dates: start: 20170208

REACTIONS (1)
  - Drug effect decreased [Unknown]

NARRATIVE: CASE EVENT DATE: 20170408
